FAERS Safety Report 8506505-6 (Version None)
Quarter: 2012Q2

REPORT INFORMATION
  Report Type: 
  Country: None (occurrence: None)
  Receive Date: 20120405
  Receipt Date: 20090401
  Transmission Date: 20120825
  Serious: Yes (Hospitalization)
  Sender: FDA-Public Use
  Company Number: PHEH2009US03137

PATIENT
  Age: 70 Year
  Sex: Female
  Weight: 59.4 kg

DRUGS (4)
  1. RECLAST [Suspect]
     Indication: OSTEOPOROSIS
     Dosage: 5 MG, INTRAVENOUS
     Route: 042
     Dates: start: 20090311
  2. NEXIUM [Concomitant]
  3. ATENOLOL [Concomitant]
  4. CRESTOR [Concomitant]

REACTIONS (1)
  - BACK PAIN [None]
